FAERS Safety Report 10348057 (Version 1)
Quarter: 2014Q3

REPORT INFORMATION
  Report Type: Spontaneous
  Country: NL (occurrence: NL)
  Receive Date: 20140729
  Receipt Date: 20140729
  Transmission Date: 20150326
  Serious: Yes (Other)
  Sender: FDA-Public Use
  Company Number: NL-ACTAVIS-2014-16198

PATIENT
  Age: 26 Year
  Sex: Male

DRUGS (4)
  1. AZITHROMYCIN [Suspect]
     Active Substance: AZITHROMYCIN ANHYDROUS
     Indication: PROPHYLAXIS
  2. AZITHROMYCIN [Suspect]
     Active Substance: AZITHROMYCIN ANHYDROUS
     Indication: GENITOURINARY CHLAMYDIA INFECTION
     Dosage: 1000 MG TWICE
     Route: 065
  3. DOXYCYCLINE MONOHYDRATE (UNKNOWN) [Suspect]
     Active Substance: DOXYCYCLINE
     Indication: LYMPHOGRANULOMA VENEREUM
     Dosage: 100 MG, BID
     Route: 065
  4. AZITHROMYCIN [Suspect]
     Active Substance: AZITHROMYCIN ANHYDROUS
     Indication: LYMPHOGRANULOMA VENEREUM

REACTIONS (2)
  - Drug effect delayed [Not Recovered/Not Resolved]
  - Drug ineffective [Not Recovered/Not Resolved]
